FAERS Safety Report 23695371 (Version 1)
Quarter: 2024Q2

REPORT INFORMATION
  Report Type: Spontaneous
  Country: SE (occurrence: SE)
  Receive Date: 20240402
  Receipt Date: 20240402
  Transmission Date: 20240716
  Serious: Yes (Hospitalization, Other)
  Sender: FDA-Public Use
  Company Number: SE-TEVA-VS-3168432

PATIENT
  Age: 86 Year
  Sex: Male

DRUGS (6)
  1. SERTRALINE [Suspect]
     Active Substance: SERTRALINE HYDROCHLORIDE
     Indication: Product used for unknown indication
     Dosage: 25 MILLIGRAM
     Route: 065
     Dates: start: 20230913, end: 20231003
  2. SERTRALINE [Suspect]
     Active Substance: SERTRALINE HYDROCHLORIDE
     Dosage: 50 MILLIGRAM (DRUG DISCONTINUED AT UNKNOWN DATE.)
     Route: 065
     Dates: start: 20231004
  3. ONDANSETRON [Suspect]
     Active Substance: ONDANSETRON
     Indication: Adverse drug reaction
     Dosage: 4 MILLIGRAM, TWO TIMES A DAY (AT 8 AM AND 8 PM)
     Route: 065
     Dates: start: 202310, end: 202311
  4. MORPHINE [Suspect]
     Active Substance: MORPHINE
     Indication: Product used for unknown indication
     Dosage: 10 MILLIGRAM, TWO TIMES A DAY
     Route: 065
     Dates: start: 20231008, end: 20231016
  5. MORPHINE [Suspect]
     Active Substance: MORPHINE
     Dosage: 5 MILLIGRAM, ONCE A DAY
     Route: 065
     Dates: start: 20231017, end: 20231020
  6. MORPHINE [Suspect]
     Active Substance: MORPHINE
     Dosage: 5 MILLIGRAM, ONCE A DAY (DISCONTINUED AFTER 26-NOV-2023)
     Route: 065
     Dates: start: 20231021

REACTIONS (8)
  - Femur fracture [Unknown]
  - Fall [Unknown]
  - Haematochezia [Unknown]
  - Haematemesis [Unknown]
  - Ulcer haemorrhage [Unknown]
  - Dizziness [Not Recovered/Not Resolved]
  - Confusional state [Unknown]
  - Rash [Recovering/Resolving]

NARRATIVE: CASE EVENT DATE: 20230101
